FAERS Safety Report 8892963 (Version 1)
Quarter: 2012Q4

REPORT INFORMATION
  Report Type: 
  Country: US (occurrence: US)
  Receive Date: 20121107
  Receipt Date: 20121107
  Transmission Date: 20130627
  Serious: No
  Sender: FDA-Public Use
  Company Number: US-AMGEN-USASP2011055890

PATIENT
  Age: 47 Year
  Sex: Female

DRUGS (3)
  1. ENBREL [Suspect]
     Indication: RHEUMATOID ARTHRITIS
     Dosage: 50 mg, qwk
     Dates: start: 20111111
  2. ENBREL [Suspect]
     Dosage: 50 mg, qwk
     Dates: start: 20110530, end: 20111007
  3. METHOTREXATE [Concomitant]
     Dosage: 1 mg, qwk
     Dates: start: 20110202

REACTIONS (8)
  - Candidiasis [Not Recovered/Not Resolved]
  - Oropharyngeal pain [Not Recovered/Not Resolved]
  - Therapeutic response decreased [Not Recovered/Not Resolved]
  - Rheumatoid arthritis [Not Recovered/Not Resolved]
  - Nausea [Not Recovered/Not Resolved]
  - Pharyngitis streptococcal [Recovered/Resolved]
  - Diarrhoea [Not Recovered/Not Resolved]
  - Laryngitis [Not Recovered/Not Resolved]
